FAERS Safety Report 5659031-6 (Version None)
Quarter: 2008Q1

REPORT INFORMATION
  Report Type: 
  Country: None (occurrence: None)
  Receive Date: 20080310
  Receipt Date: 20070727
  Transmission Date: 20080703
  Serious: Yes (Hospitalization)
  Sender: FDA-Public Use
  Company Number: US-BAYER-200711810BCC

PATIENT
  Age: 48 Year
  Sex: Female
  Weight: 64 kg

DRUGS (5)
  1. ALEVE [Suspect]
     Route: 048
  2. ALEVE [Suspect]
     Dosage: TOTAL DAILY DOSE: 880 MG  UNIT DOSE: 220 MG
     Route: 048
  3. AMOXICILLIN [Concomitant]
  4. ALLEGRA D 24 HOUR [Concomitant]
  5. MUCINEX [Concomitant]

REACTIONS (2)
  - FEELING ABNORMAL [None]
  - PANCREATITIS ACUTE [None]
